FAERS Safety Report 14658392 (Version 4)
Quarter: 2019Q3

REPORT INFORMATION
  Report Type: Spontaneous
  Country: US (occurrence: US)
  Receive Date: 20180320
  Receipt Date: 20190913
  Transmission Date: 20191004
  Serious: Yes (Death, Hospitalization, Other)
  Sender: FDA-Public Use
  Company Number: US-PFIZER INC-2018108207

PATIENT
  Age: 72 Year
  Sex: Male

DRUGS (6)
  1. SUTENT [Suspect]
     Active Substance: SUNITINIB MALATE
     Dosage: 20 MG, 1X/DAY
     Dates: start: 20180204
  2. TAMSULOSIN [Concomitant]
     Active Substance: TAMSULOSIN
     Indication: BENIGN PROSTATIC HYPERPLASIA
     Dosage: 0.4 MG, 1X/DAY
     Route: 048
     Dates: start: 20180306
  3. SUTENT [Suspect]
     Active Substance: SUNITINIB MALATE
     Indication: RENAL CELL CARCINOMA
     Dosage: 10 MG, UNK
     Dates: start: 201803
  4. LIPITOR [Concomitant]
     Active Substance: ATORVASTATIN CALCIUM
     Indication: BLOOD CHOLESTEROL INCREASED
     Dosage: 10 MG, DAILY
     Route: 048
     Dates: start: 20180206
  5. MEGESTROL [Concomitant]
     Active Substance: MEGESTROL
     Indication: INCREASED APPETITE
     Dosage: UNK UNK, DAILY [400 MG/10 ML DAILY]
     Dates: start: 20180306
  6. SUTENT [Suspect]
     Active Substance: SUNITINIB MALATE
     Dosage: 50 MG, CYCLIC (2 WEEKS ON 1 WEEK OFF)
     Route: 048
     Dates: start: 20180206, end: 201804

REACTIONS (8)
  - Malaise [Unknown]
  - Pallor [Unknown]
  - Haemoptysis [Unknown]
  - Skin discolouration [Unknown]
  - Death [Fatal]
  - Neoplasm progression [Unknown]
  - Bone pain [Unknown]
  - Asthenia [Unknown]

NARRATIVE: CASE EVENT DATE: 201802
